FAERS Safety Report 9978722 (Version 2)
Quarter: 2014Q1

REPORT INFORMATION
  Report Type: Report from Study
  Country: US (occurrence: US)
  Receive Date: 20140306
  Receipt Date: 20140306
  Transmission Date: 20141002
  Serious: No
  Sender: FDA-Public Use
  Company Number: US-ABBVIE-13P-163-1171632-00

PATIENT
  Age: 27 Year
  Sex: Female

DRUGS (5)
  1. HUMIRA [Suspect]
     Indication: CROHN^S DISEASE
     Route: 058
     Dates: start: 20131011, end: 20131011
  2. HUMIRA [Suspect]
     Route: 058
     Dates: start: 20131025, end: 20131109
  3. BUDESONIDE [Concomitant]
     Indication: CROHN^S DISEASE
  4. LEXAPRO [Concomitant]
     Indication: ANXIETY
  5. MULTIVITAMIN [Concomitant]
     Indication: VITAMIN SUPPLEMENTATION

REACTIONS (1)
  - Incorrect dose administered [Unknown]
